FAERS Safety Report 14781265 (Version 1)
Quarter: 2018Q2

REPORT INFORMATION
  Report Type: Spontaneous
  Country: US (occurrence: US)
  Receive Date: 20180419
  Receipt Date: 20180419
  Transmission Date: 20180711
  Serious: No
  Sender: FDA-Public Use
  Company Number: US-NEUROCRINE BIOSCIENCES INC.-2018NBI01040

PATIENT
  Sex: Male

DRUGS (6)
  1. LITHIUM. [Concomitant]
     Active Substance: LITHIUM
  2. RISPERDAL [Concomitant]
     Active Substance: RISPERIDONE
  3. KLONOPIN [Concomitant]
     Active Substance: CLONAZEPAM
  4. INGREZZA [Suspect]
     Active Substance: VALBENAZINE
     Indication: PRODUCT USED FOR UNKNOWN INDICATION
     Dates: start: 201802
  5. COGENTIN [Suspect]
     Active Substance: BENZTROPINE MESYLATE
     Indication: PRODUCT USED FOR UNKNOWN INDICATION
  6. DEPAKOTE [Concomitant]
     Active Substance: DIVALPROEX SODIUM

REACTIONS (2)
  - Lethargy [Unknown]
  - Balance disorder [Unknown]
